FAERS Safety Report 6223747-3 (Version None)
Quarter: 2009Q2

REPORT INFORMATION
  Report Type: 
  Country: None (occurrence: None)
  Receive Date: 20090611
  Receipt Date: 20090306
  Transmission Date: 20091009
  Serious: Yes (Hospitalization)
  Sender: FDA-Public Use
  Company Number: US-ABBOTT-09P-163-0499268-00

PATIENT
  Sex: Female
  Weight: 133.02 kg

DRUGS (22)
  1. HUMIRA [Suspect]
     Indication: PSORIATIC ARTHROPATHY
     Route: 058
     Dates: start: 20070101
  2. HUMIRA [Suspect]
     Indication: RHEUMATOID ARTHRITIS
  3. METHOTREXATE [Concomitant]
     Indication: RHEUMATOID ARTHRITIS
  4. METHOTREXATE [Concomitant]
     Indication: PSORIATIC ARTHROPATHY
  5. OMEPRAZOLE [Concomitant]
     Indication: GASTROOESOPHAGEAL REFLUX DISEASE
  6. REGLAN [Concomitant]
     Indication: IMPAIRED GASTRIC EMPTYING
     Dosage: 10 MG BEFORE EA MEAL + AT HS
  7. ZOFRAN [Concomitant]
     Indication: NAUSEA
  8. MEDROXYPROGESTERONE [Concomitant]
     Indication: MENSTRUATION IRREGULAR
  9. WELLBUTRIN SR [Concomitant]
     Indication: DEPRESSION
  10. PEPCID [Concomitant]
     Indication: GASTROOESOPHAGEAL REFLUX DISEASE
  11. PEPCID [Concomitant]
  12. LISINOPRIL [Concomitant]
     Indication: HYPERTENSION
  13. SENNA [Concomitant]
     Indication: CONSTIPATION
  14. KLOR-CON [Concomitant]
     Indication: BLOOD POTASSIUM DECREASED
  15. HYDROCODONE BITARTRATE AND ACETAMINOPHEN [Concomitant]
     Indication: PAIN
  16. PROVENTIL-HFA [Concomitant]
     Indication: ASTHMA
  17. DILAUDID [Concomitant]
     Indication: PAIN
  18. XANAX [Concomitant]
     Indication: PANIC ATTACK
  19. AMBIEN [Concomitant]
     Indication: INSOMNIA
  20. LIDODERM [Concomitant]
     Indication: PAIN
  21. NORVASC [Concomitant]
     Indication: HYPERTENSION
  22. CLARITIN [Concomitant]
     Indication: HYPERSENSITIVITY

REACTIONS (9)
  - DROP ATTACKS [None]
  - ERYTHEMA [None]
  - LOCAL SWELLING [None]
  - MASS [None]
  - MOBILITY DECREASED [None]
  - MUSCULOSKELETAL STIFFNESS [None]
  - MYALGIA [None]
  - PAIN [None]
  - VOMITING [None]
